FAERS Safety Report 4849283-4 (Version None)
Quarter: 2005Q4

REPORT INFORMATION
  Report Type: 
  Country: None (occurrence: None)
  Receive Date: 20051207
  Receipt Date: 20051122
  Transmission Date: 20060501
  Serious: Yes (Hospitalization)
  Sender: FDA-Public Use
  Company Number: 2005-0008970

PATIENT
  Age: 50 Year
  Sex: Male

DRUGS (1)
  1. VISTIDE [Suspect]
     Indication: ILL-DEFINED DISORDER
     Dosage: INTRAVENOUS
     Route: 042
     Dates: start: 20051104

REACTIONS (2)
  - DERMATITIS BULLOUS [None]
  - PHOTOSENSITIVITY REACTION [None]
